FAERS Safety Report 5474020-2 (Version None)
Quarter: 2007Q4

REPORT INFORMATION
  Report Type: 
  Country: None (occurrence: None)
  Receive Date: 20071002
  Receipt Date: 20070924
  Transmission Date: 20080405
  Serious: Yes (Hospitalization)
  Sender: FDA-Public Use
  Company Number: PHRM2007FR02247

PATIENT
  Age: 68 Year
  Sex: Male

DRUGS (2)
  1. VALSARTAN AND HYDROCHLOROTHIAZIDE [Suspect]
     Dosage: 1 DF, QD
     Route: 048
     Dates: end: 20070627
  2. TAREG [Suspect]
     Dosage: 1 DF, QD
     Route: 048
     Dates: start: 20070628, end: 20070802

REACTIONS (5)
  - DERMATOSIS [None]
  - ECZEMA NUMMULAR [None]
  - PRURITUS [None]
  - RASH ERYTHEMATOUS [None]
  - VASCULITIS [None]
